FAERS Safety Report 8621789-1 (Version None)
Quarter: 2012Q3

REPORT INFORMATION
  Report Type: 
  Country: None (occurrence: None)
  Receive Date: 20120821
  Receipt Date: 20120821
  Transmission Date: 20120928
  Serious: Yes (Disabling)
  Sender: FDA-Public Use
  Company Number: None

PATIENT
  Sex: Female
  Weight: 53.978 kg

DRUGS (1)
  1. HYDROCODONE POLISTIREX + 8-10MG/5 KREMERS URBAN PHARMACEUTICALS, [Suspect]
     Indication: COUGH
     Dosage: ONE TEASPOONFUL TWICE DAILY PO
     Route: 048
     Dates: start: 20120608, end: 20120614

REACTIONS (6)
  - DYSURIA [None]
  - MYALGIA [None]
  - LOSS OF CONTROL OF LEGS [None]
  - HALLUCINATION, VISUAL [None]
  - TONGUE INJURY [None]
  - SCREAMING [None]
